FAERS Safety Report 4831636-1 (Version None)
Quarter: 2005Q4

REPORT INFORMATION
  Report Type: 
  Country: None (occurrence: None)
  Receive Date: 20051116
  Receipt Date: 20051104
  Transmission Date: 20060501
  Serious: Yes (Life-Threatening, Hospitalization)
  Sender: FDA-Public Use
  Company Number: 2005146399

PATIENT
  Age: 68 Year
  Sex: Male
  Weight: 75 kg

DRUGS (2)
  1. LYRICA [Suspect]
     Indication: PAIN
     Dosage: 600 MG (300 MG, 2 IN 1 D), ORAL
     Route: 048
  2. DOLORMIN (IBUPROFEN LYSINATE) [Suspect]
     Indication: PAIN

REACTIONS (3)
  - ASTHMATIC CRISIS [None]
  - DRUG INTERACTION [None]
  - OXYGEN SATURATION DECREASED [None]
